FAERS Safety Report 8430673-8 (Version None)
Quarter: 2012Q2

REPORT INFORMATION
  Report Type: 
  Country: None (occurrence: None)
  Receive Date: 20120323
  Receipt Date: 20111021
  Transmission Date: 20120825
  Serious: Yes (Hospitalization)
  Sender: FDA-Public Use
  Company Number: 163-21880-11060953

PATIENT
  Age: 80 Year
  Sex: Male
  Weight: 86.1834 kg

DRUGS (6)
  1. MULTI-VITAMINS [Concomitant]
  2. CALCIUM + VITAMIN D (OS-CAL) [Concomitant]
  3. REVLIMID [Suspect]
     Indication: MULTIPLE MYELOMA
     Dosage: 10 MG, 1 IN 1 D, PO
     Route: 048
     Dates: start: 20100802
  4. PRILOSEC [Concomitant]
  5. LISINOPRIL [Concomitant]
  6. COUMADIN [Concomitant]

REACTIONS (1)
  - INFECTION [None]
